FAERS Safety Report 10229736 (Version 2)
Quarter: 2014Q3

REPORT INFORMATION
  Report Type: Spontaneous
  Country: US (occurrence: US)
  Receive Date: 20140611
  Receipt Date: 20140807
  Transmission Date: 20150326
  Serious: Yes (Hospitalization, Other)
  Sender: FDA-Public Use
  Company Number: US-NOVOPROD-412472

PATIENT
  Age: 4 Year
  Sex: Male
  Weight: 17.1 kg

DRUGS (2)
  1. NORDITROPIN [Suspect]
     Active Substance: SOMATROPIN
     Indication: SMALL FOR DATES BABY
     Dosage: 0.45 MG, QD
     Route: 058
     Dates: start: 201205
  2. FLOVENT [Concomitant]
     Active Substance: FLUTICASONE PROPIONATE
     Indication: PRODUCT USED FOR UNKNOWN INDICATION
     Dosage: UNK, PRN

REACTIONS (4)
  - Hypoglycaemia [Unknown]
  - Hypoglycaemia [Unknown]
  - Convulsion [Recovered/Resolved]
  - Hydrocephalus [Unknown]

NARRATIVE: CASE EVENT DATE: 2012
